FAERS Safety Report 23124721 (Version 1)
Quarter: 2023Q4

REPORT INFORMATION
  Report Type: Spontaneous
  Country: US (occurrence: None)
  Receive Date: 20231029
  Receipt Date: 20231029
  Transmission Date: 20240110
  Serious: No
  Sender: FDA-Public Use
  Company Number: None

PATIENT
  Age: 59 Year
  Sex: Male
  Weight: 67.5 kg

DRUGS (3)
  1. VTAMA [Suspect]
     Active Substance: TAPINAROF
     Indication: Psoriasis
     Dosage: OTHER QUANTITY : 1 AS NEEDED;?FREQUENCY : AT BEDTIME;?
     Route: 061
     Dates: start: 20231001, end: 20231027
  2. VITAMIN C [Concomitant]
     Active Substance: ASCORBIC ACID
  3. VITAMIN D [Concomitant]
     Active Substance: VITAMIN D NOS

REACTIONS (5)
  - Skin reaction [None]
  - Application site pruritus [None]
  - Application site swelling [None]
  - Application site erythema [None]
  - Swelling of eyelid [None]

NARRATIVE: CASE EVENT DATE: 20231028
